FAERS Safety Report 4407362-X (Version None)
Quarter: 2004Q3

REPORT INFORMATION
  Report Type: 
  Country: None (occurrence: None)
  Receive Date: 20040723
  Receipt Date: 20040723
  Transmission Date: 20050211
  Serious: No
  Sender: FDA-Public Use
  Company Number: None

PATIENT
  Age: 61 Year
  Sex: Male
  Weight: 76.2043 kg

DRUGS (3)
  1. ZOCOR [Suspect]
     Indication: CORONARY ANGIOPLASTY
     Dosage: 10MG/DA
     Dates: start: 20031110
  2. ZOCOR [Suspect]
     Indication: CORONARY ARTERY DISEASE
     Dosage: 10MG/DA
     Dates: start: 20031110
  3. ZOCOR [Suspect]
     Indication: MYOCARDIAL INFARCTION
     Dosage: 10MG/DA
     Dates: start: 20031110

REACTIONS (1)
  - BLOOD CREATINE PHOSPHOKINASE INCREASED [None]
